FAERS Safety Report 4975751-0 (Version None)
Quarter: 2006Q2

REPORT INFORMATION
  Report Type: 
  Country: None (occurrence: None)
  Receive Date: 20060411
  Receipt Date: 20060330
  Transmission Date: 20061013
  Serious: Yes (Other)
  Sender: FDA-Public Use
  Company Number: 2006044754

PATIENT
  Age: 64 Year
  Sex: Male

DRUGS (1)
  1. AZULFIDINE [Suspect]
     Indication: COLITIS
     Dosage: (2 IN 1 D), ORAL
     Route: 048

REACTIONS (2)
  - IRON DEFICIENCY ANAEMIA [None]
  - THROMBOCYTHAEMIA [None]
